FAERS Safety Report 21502332 (Version 1)
Quarter: 2022Q4

REPORT INFORMATION
  Report Type: Report from Study
  Country: US (occurrence: US)
  Receive Date: 20221025
  Receipt Date: 20221025
  Transmission Date: 20230112
  Serious: No
  Sender: FDA-Public Use
  Company Number: US-KADMON-US-KAD-22-00725

PATIENT
  Sex: Male

DRUGS (2)
  1. REZUROCK [Suspect]
     Active Substance: BELUMOSUDIL
     Indication: Muscle spasms
     Dosage: 200 MILLIGRAM, QD
     Route: 048
     Dates: start: 20220122
  2. REZUROCK [Suspect]
     Active Substance: BELUMOSUDIL
     Indication: Graft versus host disease

REACTIONS (2)
  - Muscle spasms [Unknown]
  - Therapeutic product effect decreased [Unknown]
